FAERS Safety Report 5327819-7 (Version None)
Quarter: 2007Q2

REPORT INFORMATION
  Report Type: 
  Country: None (occurrence: None)
  Receive Date: 20070517
  Receipt Date: 20070514
  Transmission Date: 20071010
  Serious: Yes (Other)
  Sender: FDA-Public Use
  Company Number: HQWYE396305DEC06

PATIENT
  Sex: Male
  Weight: 79 kg

DRUGS (4)
  1. SIROLIMUS [Suspect]
     Indication: PROPHYLAXIS AGAINST TRANSPLANT REJECTION
     Dosage: 2 MG/FREQUENCY NOT PROVIDED
     Route: 048
     Dates: start: 20040414
  2. INDAPAMIDE [Concomitant]
     Route: 048
     Dates: start: 20050221
  3. TEBETANE COMPUESTO [Concomitant]
     Indication: PROSTATISM
     Route: 048
  4. ALLOPURINOL [Concomitant]
     Indication: HYPERURICAEMIA
     Route: 048
     Dates: start: 20050216

REACTIONS (1)
  - PROSTATE CANCER [None]
